FAERS Safety Report 25709542 (Version 2)
Quarter: 2025Q3

REPORT INFORMATION
  Report Type: Spontaneous
  Country: EU (occurrence: EU)
  Receive Date: 20250821
  Receipt Date: 20250830
  Transmission Date: 20251020
  Serious: Yes (Other)
  Sender: MERCK SHARP & DOHME LLC
  Company Number: EU-CHEPLA-2025009279

PATIENT
  Age: 58 Year
  Sex: Female
  Weight: 60 kg

DRUGS (4)
  1. PEMBROLIZUMAB [Suspect]
     Active Substance: PEMBROLIZUMAB
     Indication: Breast cancer
     Route: 065
     Dates: start: 20230216
  2. PEMBROLIZUMAB [Suspect]
     Active Substance: PEMBROLIZUMAB
     Indication: Breast cancer
     Route: 065
     Dates: start: 20230330, end: 20230803
  3. XELODA [Suspect]
     Active Substance: CAPECITABINE
     Indication: Breast cancer
     Route: 065
     Dates: start: 20230216
  4. XELODA [Suspect]
     Active Substance: CAPECITABINE
     Indication: Breast cancer
     Dosage: FREQ: BID; ON 30-03-2023, SHE RECEIVED OF LAST APPLICATION PRIOR EVENT.?2000 MG: LAST DOSE PRIOR ...
     Route: 065
     Dates: start: 20230330, end: 20230420

REACTIONS (1)
  - Alanine aminotransferase decreased [Recovered/Resolved]

NARRATIVE: CASE EVENT DATE: 20230330
